FAERS Safety Report 8398042 (Version 6)
Quarter: 2012Q4

REPORT INFORMATION
  Report Type: 
  Country: GB (occurrence: US)
  Receive Date: 20120209
  Receipt Date: 20121030
  Transmission Date: 20130627
  Serious: Yes (Hospitalization, Other)
  Sender: FDA-Public Use
  Company Number: US-MERCK-1202USA01304

PATIENT

DRUGS (11)
  1. FOSAMAX [Suspect]
     Indication: OSTEOPOROSIS
     Dosage: 10 mg, qd
     Route: 048
     Dates: start: 1995, end: 2001
  2. FOSAMAX [Suspect]
     Dosage: 70 mg, UNK
     Route: 048
     Dates: start: 20020111, end: 200611
  3. FOSAMAX [Suspect]
     Dosage: 35 mg, qd
     Route: 048
     Dates: start: 20061104, end: 20080628
  4. FOSAMAX [Suspect]
     Dosage: 35 mg, UNK
     Route: 048
     Dates: start: 20100420
  5. FOSAMAX PLUS D [Suspect]
     Indication: OSTEOPOROSIS
     Dosage: 70 mg, qw
     Route: 048
     Dates: start: 2002, end: 2006
  6. FOSAMAX [Suspect]
     Indication: OSTEOPOROSIS
     Dosage: 35 mg, UNK
     Route: 048
  7. ALENDRONATE SODIUM [Suspect]
     Indication: OSTEOPOROSIS
     Dosage: 35 mg, UNK
     Route: 048
     Dates: start: 20090513, end: 200910
  8. ALENDRONATE SODIUM [Suspect]
     Indication: OSTEOPOROSIS
     Dosage: 35 mg, UNK
     Route: 048
     Dates: start: 20091021, end: 201004
  9. VITAMINS (UNSPECIFIED) [Concomitant]
     Dosage: UNK
     Dates: start: 1992
  10. GABAPENTIN [Concomitant]
     Indication: NEURALGIA
     Dosage: UNK
     Dates: start: 1998
  11. LEVOTHYROXINE SODIUM [Concomitant]
     Indication: THYROID DISORDER
     Dosage: UNK
     Dates: start: 1995

REACTIONS (57)
  - Femur fracture [Unknown]
  - Open reduction of fracture [Unknown]
  - Knee arthroplasty [Unknown]
  - Knee arthroplasty [Unknown]
  - Procedural pain [Unknown]
  - Tooth disorder [Unknown]
  - Osteogenesis imperfecta [Unknown]
  - Oestrogen deficiency [Unknown]
  - Body height decreased [Unknown]
  - Kyphosis [Unknown]
  - Osteopenia [Unknown]
  - Hypertension [Unknown]
  - Osteoarthritis [Unknown]
  - Hiatus hernia [Unknown]
  - Pulmonary fibrosis [Unknown]
  - Excoriation [Unknown]
  - Laceration [Unknown]
  - Trigger finger [Unknown]
  - Iliotibial band syndrome [Recovering/Resolving]
  - Arthralgia [Unknown]
  - Pain in extremity [Unknown]
  - Back pain [Unknown]
  - Oedema peripheral [Unknown]
  - Dizziness [Unknown]
  - Joint swelling [Unknown]
  - Arthralgia [Recovering/Resolving]
  - Arthritis [Unknown]
  - Gastrooesophageal reflux disease [Unknown]
  - Hyperlipidaemia [Unknown]
  - Renal failure chronic [Unknown]
  - Glaucoma [Unknown]
  - Appendicectomy [Unknown]
  - Cholecystectomy [Unknown]
  - Drug hypersensitivity [Unknown]
  - Gastrointestinal inflammation [Unknown]
  - Constipation [Unknown]
  - Colon adenoma [Unknown]
  - Gastrointestinal tract adenoma [Unknown]
  - Polymyalgia rheumatica [Unknown]
  - Laryngitis [Unknown]
  - Myalgia [Recovering/Resolving]
  - Upper respiratory tract congestion [Unknown]
  - Cough [Unknown]
  - Pyrexia [Unknown]
  - Venous insufficiency [Unknown]
  - Phlebitis [Unknown]
  - Myocardial ischaemia [Unknown]
  - Hypertension [Recovered/Resolved]
  - Productive cough [Unknown]
  - Diarrhoea [Unknown]
  - Vomiting [Recovered/Resolved]
  - Gait disturbance [Unknown]
  - Hypokalaemia [Unknown]
  - Colectomy [Unknown]
  - Hypokalaemia [Unknown]
  - Diverticulum [Unknown]
  - Muscle spasms [Recovered/Resolved]
